FAERS Safety Report 5334135-6 (Version None)
Quarter: 2007Q2

REPORT INFORMATION
  Report Type: 
  Country: None (occurrence: None)
  Receive Date: 20070308
  Receipt Date: 20061121
  Transmission Date: 20071010
  Serious: No
  Sender: FDA-Public Use
  Company Number: 2006-BP-05079BP

PATIENT
  Age: 74 Year
  Sex: Female
  Weight: 43.5 kg

DRUGS (10)
  1. SPIRIVA [Suspect]
     Indication: CHRONIC OBSTRUCTIVE PULMONARY DISEASE
     Dosage: 18 MCG (18 MCG, 1 IN 1 D), IH
     Route: 055
     Dates: start: 20050209
  2. SPIRIVA [Suspect]
  3. LITHIUM CARBONATE [Concomitant]
  4. AMITRIPTYLINE HCL [Concomitant]
  5. OXYGEN (OXYGEN) [Concomitant]
  6. PERPHENAZINE [Concomitant]
  7. FOSAMAX [Concomitant]
  8. CALCIUM (CALCIUM) [Concomitant]
  9. VITAMIN E [Concomitant]
  10. ADVIL [Concomitant]

REACTIONS (1)
  - DRUG INEFFECTIVE [None]
